FAERS Safety Report 7065436-1 (Version None)
Quarter: 2010Q4

REPORT INFORMATION
  Report Type: 
  Country: None (occurrence: None)
  Receive Date: 20101027
  Receipt Date: 20101025
  Transmission Date: 20110411
  Serious: No
  Sender: FDA-Public Use
  Company Number: US-PFIZER INC-2010135731

PATIENT
  Sex: Female
  Weight: 81.633 kg

DRUGS (6)
  1. BEXTRA [Suspect]
     Indication: PAIN IN EXTREMITY
     Dosage: 10 MG, 1X/DAY
     Route: 048
     Dates: start: 20030601, end: 20031001
  2. BEXTRA [Suspect]
     Indication: ARTHRALGIA
  3. BEXTRA [Suspect]
     Indication: BACK PAIN
  4. ACETAMINOPHEN [Concomitant]
     Indication: PAIN
     Dosage: 100 MG, 1X/DAY
  5. TOPROL-XL [Concomitant]
     Indication: CARDIAC DISORDER
     Dosage: UNK
     Route: 048
  6. AVALIDE [Concomitant]
     Indication: CARDIAC DISORDER
     Dosage: 100 MG, 1X/DAY

REACTIONS (2)
  - CIRCUMSTANCE OR INFORMATION CAPABLE OF LEADING TO MEDICATION ERROR [None]
  - DRUG INEFFECTIVE [None]
